FAERS Safety Report 21707358 (Version 2)
Quarter: 2023Q1

REPORT INFORMATION
  Report Type: Spontaneous
  Country: DK (occurrence: DK)
  Receive Date: 20221209
  Receipt Date: 20230102
  Transmission Date: 20230418
  Serious: Yes (Hospitalization, Other)
  Sender: FDA-Public Use
  Company Number: DK-BRISTOL-MYERS SQUIBB COMPANY-DNK-20200806813

PATIENT
  Age: 73 Year
  Sex: Male

DRUGS (31)
  1. DEXAMETHASONE [Suspect]
     Active Substance: DEXAMETHASONE
     Indication: Plasma cell myeloma
     Route: 065
     Dates: start: 20200731, end: 20200815
  2. DEXAMETHASONE [Suspect]
     Active Substance: DEXAMETHASONE
     Indication: Plasma cell myeloma
     Dosage: 20 MILIGRAM
     Route: 048
     Dates: start: 20190315, end: 20190329
  3. DEXAMETHASONE [Suspect]
     Active Substance: DEXAMETHASONE
     Route: 048
     Dates: start: 20200605, end: 20200620
  4. DEXAMETHASONE [Suspect]
     Active Substance: DEXAMETHASONE
     Dosage: 20 MILIGRAM
     Route: 048
     Dates: start: 20190607, end: 20200622
  5. DEXAMETHASONE [Suspect]
     Active Substance: DEXAMETHASONE
     Dosage: 20 MILIGRAM
     Route: 048
     Dates: start: 20190412, end: 20190426
  6. DEXAMETHASONE [Suspect]
     Active Substance: DEXAMETHASONE
     Dosage: 20 MILIGRAM
     Route: 048
     Dates: start: 20190510, end: 20190525
  7. DEXAMETHASONE [Suspect]
     Active Substance: DEXAMETHASONE
     Dosage: 20 MILIGRAM
     Route: 048
     Dates: start: 20200508, end: 20200523
  8. DEXAMETHASONE [Suspect]
     Active Substance: DEXAMETHASONE
     Dosage: 20 MILIGRAM
     Route: 048
     Dates: start: 20200313, end: 20200328
  9. DEXAMETHASONE [Suspect]
     Active Substance: DEXAMETHASONE
     Dosage: 20 MILIGRAM
     Route: 048
     Dates: start: 20190215, end: 20190301
  10. DEXAMETHASONE [Suspect]
     Active Substance: DEXAMETHASONE
     Route: 048
     Dates: start: 20190410, end: 20190425
  11. DEXAMETHASONE [Suspect]
     Active Substance: DEXAMETHASONE
     Route: 048
     Dates: start: 20200214, end: 20200229
  12. DEXAMETHASONE [Suspect]
     Active Substance: DEXAMETHASONE
     Route: 048
     Dates: start: 20200703, end: 20200718
  13. REVLIMID [Suspect]
     Active Substance: LENALIDOMIDE
     Indication: Plasma cell myeloma
     Dosage: QOD
     Route: 048
     Dates: start: 20200508, end: 20200528
  14. REVLIMID [Suspect]
     Active Substance: LENALIDOMIDE
     Dosage: QOD
     Route: 048
     Dates: start: 20200703, end: 20200723
  15. REVLIMID [Suspect]
     Active Substance: LENALIDOMIDE
     Dosage: QOD
     Route: 048
     Dates: start: 20200214, end: 20200305
  16. REVLIMID [Suspect]
     Active Substance: LENALIDOMIDE
     Dosage: REASON IF DOSE WAS NOT ADMINISTERED.: RESTPERIOD
     Dates: start: 20200501, end: 20200507
  17. REVLIMID [Suspect]
     Active Substance: LENALIDOMIDE
     Dosage: QOD
     Route: 048
     Dates: start: 20200313, end: 20200402
  18. REVLIMID [Suspect]
     Active Substance: LENALIDOMIDE
     Dosage: 25 MILLIGRAM
     Route: 048
     Dates: start: 20190607, end: 20190627
  19. REVLIMID [Suspect]
     Active Substance: LENALIDOMIDE
     Dosage: REASON IF DOSE WAS NOT ADMINISTERED.: RESTPERIOD
     Route: 065
     Dates: start: 20200529, end: 20200604
  20. REVLIMID [Suspect]
     Active Substance: LENALIDOMIDE
     Dosage: REASON IF DOSE WAS NOT ADMINISTERED.: RESTPERIOD
     Route: 065
     Dates: start: 20200306, end: 20200312
  21. REVLIMID [Suspect]
     Active Substance: LENALIDOMIDE
     Dosage: REASON IF DOSE WAS NOT ADMINISTERED.: RESTPERIOD
     Route: 065
     Dates: start: 20200724, end: 20200728
  22. REVLIMID [Suspect]
     Active Substance: LENALIDOMIDE
     Dosage: 25 MILLIGRAM
     Route: 048
     Dates: start: 20190215, end: 20190307
  23. REVLIMID [Suspect]
     Active Substance: LENALIDOMIDE
     Dosage: REASON IF DOSE WAS NOT ADMINISTERED.: RESTPERIOD
     Route: 065
     Dates: start: 20200729, end: 20200825
  24. REVLIMID [Suspect]
     Active Substance: LENALIDOMIDE
     Dosage: REASON IF DOSE WAS NOT ADMINISTERED.: RESTPERIOD
     Route: 065
     Dates: start: 20200626, end: 20200702
  25. REVLIMID [Suspect]
     Active Substance: LENALIDOMIDE
     Dosage: 25 MILLIGRAM
     Route: 048
     Dates: start: 20190510, end: 20190530
  26. REVLIMID [Suspect]
     Active Substance: LENALIDOMIDE
     Dosage: 25 MILLIGRAM
     Route: 048
     Dates: start: 20190412, end: 20190502
  27. REVLIMID [Suspect]
     Active Substance: LENALIDOMIDE
     Dosage: QOD
     Route: 048
     Dates: start: 20200410, end: 20200430
  28. REVLIMID [Suspect]
     Active Substance: LENALIDOMIDE
     Dosage: QOD
     Route: 048
     Dates: start: 20200605, end: 20200625
  29. REVLIMID [Suspect]
     Active Substance: LENALIDOMIDE
     Dosage: REASON IF DOSE WAS NOT ADMINISTERED.: RESTPERIOD
     Route: 065
     Dates: start: 20200403, end: 20200409
  30. REVLIMID [Suspect]
     Active Substance: LENALIDOMIDE
     Dosage: REASON IF DOSE WAS NOT ADMINISTERED.: RESTPERIOD
     Route: 065
     Dates: start: 20200207, end: 20200213
  31. REVLIMID [Suspect]
     Active Substance: LENALIDOMIDE
     Dosage: 25 MILLIGRAM
     Route: 048
     Dates: start: 20190315, end: 20190404

REACTIONS (4)
  - Postoperative wound infection [Recovered/Resolved]
  - Pruritus [Not Recovered/Not Resolved]
  - Diarrhoea [Not Recovered/Not Resolved]
  - Constipation [Not Recovered/Not Resolved]

NARRATIVE: CASE EVENT DATE: 20200520
